FAERS Safety Report 10269034 (Version 1)
Quarter: 2014Q2

REPORT INFORMATION
  Report Type: Spontaneous
  Country: US (occurrence: US)
  Receive Date: 20140630
  Receipt Date: 20140630
  Transmission Date: 20141212
  Serious: Yes (Hospitalization, Congenital Anomaly)
  Sender: FDA-Public Use
  Company Number: US-ABBVIE-14P-163-1251016-00

PATIENT
  Age: 31 Year
  Sex: Female

DRUGS (1)
  1. HUMIRA [Suspect]
     Indication: PSORIASIS
     Dates: end: 201212

REACTIONS (4)
  - Diabetes mellitus inadequate control [Recovered/Resolved]
  - Oxygen saturation decreased [Recovered/Resolved]
  - Clostridium difficile infection [Recovered/Resolved]
  - Diabetes mellitus [Not Recovered/Not Resolved]
